FAERS Safety Report 17523544 (Version 1)
Quarter: 2020Q1

REPORT INFORMATION
  Report Type: Spontaneous
  Country: US (occurrence: US)
  Receive Date: 20200311
  Receipt Date: 20200311
  Transmission Date: 20200409
  Serious: Yes (Death, Life-Threatening)
  Sender: FDA-Public Use
  Company Number: US-VIFOR (INTERNATIONAL) INC.-VIT-2020-04453

PATIENT
  Age: 54 Year
  Sex: Male
  Weight: 106 kg

DRUGS (1)
  1. MIRCERA [Suspect]
     Active Substance: METHOXY POLYETHYLENE GLYCOL-EPOETIN BETA
     Indication: NEPHROGENIC ANAEMIA
     Dosage: 60MCG (30 MCG X 2)
     Route: 040
     Dates: start: 20200228, end: 20200228

REACTIONS (5)
  - Seizure [Unknown]
  - Foaming at mouth [Unknown]
  - Unresponsive to stimuli [Unknown]
  - Death [Fatal]
  - Dizziness [Unknown]

NARRATIVE: CASE EVENT DATE: 20200228
